FAERS Safety Report 15101519 (Version 3)
Quarter: 2018Q4

REPORT INFORMATION
  Report Type: Spontaneous
  Country: US (occurrence: US)
  Receive Date: 20180703
  Receipt Date: 20181010
  Transmission Date: 20190204
  Serious: Yes (Other)
  Sender: FDA-Public Use
  Company Number: US-GLAXOSMITHKLINE-US2018115947

PATIENT
  Sex: Female

DRUGS (2)
  1. IRON SHOTS [Concomitant]
  2. ADVAIR DISKUS [Suspect]
     Active Substance: FLUTICASONE PROPIONATE\SALMETEROL XINAFOATE
     Indication: PRODUCT USED FOR UNKNOWN INDICATION
     Dosage: 1 PUFF(S), QD
     Dates: start: 2000

REACTIONS (6)
  - Underdose [Unknown]
  - Lung neoplasm malignant [Unknown]
  - Inappropriate schedule of product administration [Unknown]
  - Metastases to bone [Unknown]
  - Breast cancer [Unknown]
  - Off label use [Unknown]

NARRATIVE: CASE EVENT DATE: 2000
